FAERS Safety Report 19990811 (Version 2)
Quarter: 2021Q4

REPORT INFORMATION
  Report Type: Spontaneous
  Country: NL (occurrence: NL)
  Receive Date: 20211025
  Receipt Date: 20211101
  Transmission Date: 20220304
  Serious: Yes (Life-Threatening, Other)
  Sender: FDA-Public Use
  Company Number: None

PATIENT
  Age: 64 Year
  Sex: Male
  Weight: 96.6 kg

DRUGS (8)
  1. CIPROFLOXACIN [Suspect]
     Active Substance: CIPROFLOXACIN
     Indication: Pyelonephritis
     Dosage: 500 MILLIGRAM, BID (2 X PER DAG 1 STUK GEDURENDE 7 DAGEN)
     Dates: start: 20210605, end: 20210714
  2. CIPROFLOXACIN [Suspect]
     Active Substance: CIPROFLOXACIN
     Dosage: 500 MILLIGRAM, BID (2 X PER DAG 1 STUK GEDURENDE 7 DAGEN)
     Dates: start: 20210605, end: 20210614
  3. TICAGRELOR [Concomitant]
     Active Substance: TICAGRELOR
     Dosage: 90 MILLIGRAM, (TABLET, 90 MILLIGRAM)
  4. CARBASPIRIN CALCIUM [Concomitant]
     Active Substance: CARBASPIRIN CALCIUM
     Dosage: UNK, (BRUISTABLET, 100 MG (MILLIGRAM)
  5. SELOKEEN                           /00376903/ [Concomitant]
     Dosage: UNK, (TABLET MET GEREGULEERDE AFGIFTE, 50 MG (MILLIGRAM)
  6. ESOMEPRAZOL                        /01479301/ [Concomitant]
     Dosage: UNK, (MAAGSAPRESISTENTE CAPSULE, 40 MG (MILLIGRAM)
  7. LISINOPRIL [Concomitant]
     Active Substance: LISINOPRIL
     Dosage: UNK, (TABLET, 5 MG (MILLIGRAM)
  8. ROSUVASTATINE                      /01588601/ [Concomitant]
     Dosage: UNK, (TABLET, 10 MG (MILLIGRAM)

REACTIONS (1)
  - Coronary artery dissection [Recovering/Resolving]

NARRATIVE: CASE EVENT DATE: 20210612
